FAERS Safety Report 9345066 (Version 3)
Quarter: 2013Q4

REPORT INFORMATION
  Report Type: Spontaneous
  Country: US (occurrence: US)
  Receive Date: 20130612
  Receipt Date: 20131028
  Transmission Date: 20140711
  Serious: No
  Sender: FDA-Public Use
  Company Number: US-009507513-1305USA013456

PATIENT
  Age: 36 Year
  Sex: Female
  Weight: 71.2 kg

DRUGS (3)
  1. PEGINTRON [Suspect]
     Indication: CHRONIC HEPATITIS C
     Dosage: 120 MICROGRAM, QW, 120 MICROGRAM 10.5 MILLILITRE
     Route: 058
     Dates: start: 20130508, end: 20130725
  2. REBETOL [Suspect]
     Indication: CHRONIC HEPATITIS C
     Dosage: UNK
     Route: 048
     Dates: start: 20130508, end: 20130725
  3. TELAPREVIR [Suspect]
     Indication: CHRONIC HEPATITIS C
     Dosage: UNK
     Route: 048
     Dates: start: 20130508, end: 20130725

REACTIONS (3)
  - Haemoglobin increased [Recovered/Resolved]
  - White blood cell count decreased [Recovered/Resolved]
  - Blood triglycerides [Recovering/Resolving]
